FAERS Safety Report 20995352 (Version 1)
Quarter: 2022Q2

REPORT INFORMATION
  Report Type: Spontaneous
  Country: US (occurrence: US)
  Receive Date: 20220622
  Receipt Date: 20220622
  Transmission Date: 20220721
  Serious: No
  Sender: FDA-Public Use
  Company Number: US-CTI BIOPHARMA-2022US02832

PATIENT

DRUGS (1)
  1. VONJO [Suspect]
     Active Substance: PACRITINIB
     Indication: Myelofibrosis
     Dosage: 200 MILLIGRAM, BID
     Route: 048
     Dates: start: 20220509

REACTIONS (4)
  - Rash maculo-papular [Unknown]
  - Haemoglobin decreased [Unknown]
  - Rash pruritic [Unknown]
  - Paraesthesia oral [Unknown]

NARRATIVE: CASE EVENT DATE: 20220501
